FAERS Safety Report 18399294 (Version 2)
Quarter: 2020Q4

REPORT INFORMATION
  Report Type: Spontaneous
  Country: JP (occurrence: JP)
  Receive Date: 20201019
  Receipt Date: 20201126
  Transmission Date: 20210114
  Serious: Yes (Hospitalization)
  Sender: FDA-Public Use
  Company Number: JP-009507513-2010JPN005801

PATIENT
  Age: 83 Year

DRUGS (1)
  1. KIPRES [Suspect]
     Active Substance: MONTELUKAST SODIUM
     Indication: ASTHMA
     Dosage: 10 MILLIGRAM
     Route: 048

REACTIONS (2)
  - Wrong technique in product usage process [Unknown]
  - Hospitalisation [Unknown]
